FAERS Safety Report 6137833-X (Version None)
Quarter: 2009Q1

REPORT INFORMATION
  Report Type: 
  Country: None (occurrence: None)
  Receive Date: 20090331
  Receipt Date: 20090319
  Transmission Date: 20090719
  Serious: Yes (Other)
  Sender: FDA-Public Use
  Company Number: GB-BAXTER-2009BH004395

PATIENT
  Age: 62 Year
  Sex: Male

DRUGS (6)
  1. GENTAMICIN [Suspect]
     Indication: BACTERAEMIA
     Route: 065
  2. MEROPENEM [Suspect]
     Indication: BACTERAEMIA
     Route: 065
  3. TAZOCIN [Suspect]
     Indication: BACTERAEMIA
     Route: 065
  4. VANCOMYCIN HCL [Suspect]
     Indication: BACTERAEMIA
     Route: 065
  5. ACYCLOVIR [Concomitant]
     Indication: ANTIVIRAL PROPHYLAXIS
  6. CYCLOSPORINE [Concomitant]
     Indication: PROPHYLAXIS AGAINST GRAFT VERSUS HOST DISEASE

REACTIONS (3)
  - CYTOMEGALOVIRUS INFECTION [None]
  - DRUG RASH WITH EOSINOPHILIA AND SYSTEMIC SYMPTOMS [None]
  - OEDEMA [None]
